FAERS Safety Report 6899409-6 (Version None)
Quarter: 2010Q3

REPORT INFORMATION
  Report Type: 
  Country: None (occurrence: None)
  Receive Date: 20100803
  Receipt Date: 20090628
  Transmission Date: 20110219
  Serious: Yes (Hospitalization)
  Sender: FDA-Public Use
  Company Number: US-PFIZER INC-2007072386

PATIENT
  Sex: Female
  Weight: 87.3 kg

DRUGS (4)
  1. LYRICA [Suspect]
     Indication: NEURALGIA
     Dosage: 300 MG, 3X/DAY
     Dates: start: 20060101
  2. CELEBREX [Concomitant]
     Indication: ARTHRITIS
  3. OGEN [Concomitant]
     Indication: HORMONE LEVEL ABNORMAL
  4. DRIXORAL [Concomitant]

REACTIONS (5)
  - DRUG EFFECT DECREASED [None]
  - MUSCLE SPASMS [None]
  - NEURALGIA [None]
  - PAIN [None]
  - VOMITING [None]
